FAERS Safety Report 24281140 (Version 1)
Quarter: 2024Q3

REPORT INFORMATION
  Report Type: Spontaneous
  Country: PL (occurrence: PL)
  Receive Date: 20240904
  Receipt Date: 20240904
  Transmission Date: 20241016
  Serious: Yes (Other)
  Sender: MYLAN
  Company Number: PL-MYLANLABS-2024M1080515

PATIENT
  Age: 14 Year
  Sex: Male

DRUGS (4)
  1. RUPATADINE [Suspect]
     Active Substance: RUPATADINE
     Indication: Acne fulminans
     Dosage: UNK
     Route: 065
  2. ISOTRETINOIN [Suspect]
     Active Substance: ISOTRETINOIN
     Indication: Acne fulminans
     Dosage: 0.5 MILLIGRAM/KILOGRAM, QD, ESCALATED
     Route: 048
  3. METHYLPREDNISOLONE [Concomitant]
     Active Substance: METHYLPREDNISOLONE
     Indication: Acne fulminans
     Dosage: 0.5 MILLIGRAM/KILOGRAM, QD, FOR 4?WEEKS
     Route: 065
  4. METHYLPREDNISOLONE [Concomitant]
     Active Substance: METHYLPREDNISOLONE
     Dosage: 5 MILLIGRAM, QD, TAPPERED
     Route: 065

REACTIONS (3)
  - Drug ineffective for unapproved indication [Unknown]
  - Off label use [Unknown]
  - Proteinuria [Unknown]
